FAERS Safety Report 10233704 (Version 1)
Quarter: 2014Q2

REPORT INFORMATION
  Report Type: Spontaneous
  Country: FR (occurrence: FR)
  Receive Date: 20140612
  Receipt Date: 20140612
  Transmission Date: 20141212
  Serious: Yes (Hospitalization)
  Sender: FDA-Public Use
  Company Number: FR-ROCHE-1414257

PATIENT
  Age: 21 Year
  Sex: Male

DRUGS (3)
  1. VALIUM [Suspect]
     Indication: MUSCLE CONTRACTURE
     Route: 030
     Dates: start: 20140520, end: 20140520
  2. MMR VACCINATION [Suspect]
     Indication: IMMUNISATION
     Dosage: LIVE ATTENUATED MEASLES-MUMPS-RUBELLA VIRUS VACCIN
     Route: 065
     Dates: start: 20140507, end: 20140507
  3. PROFENID [Suspect]
     Indication: MUSCLE CONTRACTURE
     Route: 030
     Dates: start: 20140520, end: 20140520

REACTIONS (5)
  - Confusional state [Recovered/Resolved]
  - Salivary hypersecretion [Recovered/Resolved]
  - Generalised tonic-clonic seizure [Recovered/Resolved]
  - Depressed level of consciousness [Recovered/Resolved]
  - Blood creatine phosphokinase increased [Not Recovered/Not Resolved]
